FAERS Safety Report 23845562 (Version 3)
Quarter: 2024Q3

REPORT INFORMATION
  Report Type: Report from Study
  Country: US (occurrence: US)
  Receive Date: 20240511
  Receipt Date: 20240727
  Transmission Date: 20241017
  Serious: Yes (Other)
  Sender: TEVA
  Company Number: US-TEVA-VS-3196310

PATIENT
  Age: 67 Year
  Sex: Male

DRUGS (6)
  1. AMOXICILLIN [Suspect]
     Active Substance: AMOXICILLIN
     Indication: Product used for unknown indication
     Route: 065
  2. MIRALAX [Concomitant]
     Active Substance: POLYETHYLENE GLYCOL 3350
  3. ORGOVYX [Concomitant]
     Active Substance: RELUGOLIX
     Dates: start: 20240201
  4. XTANDI [Suspect]
     Active Substance: ENZALUTAMIDE
     Indication: Prostate cancer
     Route: 048
     Dates: start: 20240201
  5. XTANDI [Suspect]
     Active Substance: ENZALUTAMIDE
     Indication: Prostate cancer
     Route: 048
  6. XTANDI [Suspect]
     Active Substance: ENZALUTAMIDE
     Indication: Prostate cancer
     Route: 048

REACTIONS (11)
  - Erectile dysfunction [Unknown]
  - Back disorder [Unknown]
  - Arthropathy [Unknown]
  - Urine flow decreased [Unknown]
  - Pruritus [Unknown]
  - Hot flush [Unknown]
  - Constipation [Unknown]
  - Urethritis noninfective [Unknown]
  - Dysuria [Unknown]
  - Cystitis noninfective [Unknown]
  - Blood urea increased [Unknown]
